FAERS Safety Report 8844636 (Version 2)
Quarter: 2012Q4

REPORT INFORMATION
  Report Type: Spontaneous
  Country: US (occurrence: None)
  Receive Date: 20121012
  Receipt Date: 20121023
  Transmission Date: 20130627
  Serious: Yes (Hospitalization)
  Sender: FDA-Public Use
  Company Number: TPA2012A07629

PATIENT
  Age: 57 Year
  Sex: Female
  Weight: 88 kg

DRUGS (1)
  1. EDARBYCLOR [Suspect]
     Indication: HYPERTENSION
     Dosage: 1 in 1 D
     Route: 048
     Dates: start: 20120829, end: 20120901

REACTIONS (3)
  - Dehydration [None]
  - Renal failure [None]
  - Chest discomfort [None]
